FAERS Safety Report 4508525-5 (Version None)
Quarter: 2004Q4

REPORT INFORMATION
  Report Type: 
  Country: None (occurrence: None)
  Receive Date: 20041123
  Receipt Date: 20040317
  Transmission Date: 20050328
  Serious: Yes (Life-Threatening, Disabling, Other)
  Sender: FDA-Public Use
  Company Number: US-GLAXOSMITHKLINE-A0503198A

PATIENT
  Age: 54 Year
  Sex: Female

DRUGS (11)
  1. WELLBUTRIN [Suspect]
     Indication: DEPRESSION
     Route: 048
     Dates: start: 20010402, end: 20010410
  2. PROZAC [Concomitant]
  3. IBUPROFEN [Concomitant]
  4. CLARITIN [Concomitant]
  5. NICOTINE [Concomitant]
  6. AXID [Concomitant]
  7. VICODIN [Concomitant]
  8. VITAMIN B COMPLEX CAP [Concomitant]
  9. TRAZODONE HCL [Concomitant]
  10. KLONOPIN [Concomitant]
  11. AMBIEN [Concomitant]

REACTIONS (2)
  - GRAND MAL CONVULSION [None]
  - SKIN LACERATION [None]
